FAERS Safety Report 17073580 (Version 1)
Quarter: 2019Q4

REPORT INFORMATION
  Report Type: Spontaneous
  Country: US (occurrence: US)
  Receive Date: 20191126
  Receipt Date: 20191126
  Transmission Date: 20200122
  Serious: Yes (Other)
  Sender: FDA-Public Use
  Company Number: US-CIPLA LTD.-2019US07615

PATIENT

DRUGS (4)
  1. CELECOXIB. [Suspect]
     Active Substance: CELECOXIB
     Indication: INFLAMMATION
     Dosage: 200 MILLIGRAM, QD, AS NEEDED, ON AND OFF FOR OVER 10 YEARS
     Route: 048
  2. CELECOXIB. [Suspect]
     Active Substance: CELECOXIB
     Dosage: 200 MILLIGRAM, QD, AS NEEDED, NORTHSTAR CELECOXIB
     Route: 048
     Dates: start: 2018, end: 2019
  3. CELECOXIB. [Suspect]
     Active Substance: CELECOXIB
     Dosage: 200 MILLIGRAM, QD, AS NEEDED
     Route: 048
     Dates: start: 201905
  4. TRAZODONE [Concomitant]
     Active Substance: TRAZODONE HYDROCHLORIDE
     Indication: PRODUCT USED FOR UNKNOWN INDICATION
     Dosage: UNK
     Route: 065

REACTIONS (2)
  - Clostridium difficile infection [Recovered/Resolved]
  - Diarrhoea [Unknown]

NARRATIVE: CASE EVENT DATE: 2019
